FAERS Safety Report 6576712-0 (Version None)
Quarter: 2010Q1

REPORT INFORMATION
  Report Type: 
  Country: None (occurrence: None)
  Receive Date: 20100210
  Receipt Date: 20100204
  Transmission Date: 20100710
  Serious: Yes (Death, Life-Threatening, Hospitalization)
  Sender: FDA-Public Use
  Company Number: ES-ROCHE-639377

PATIENT
  Sex: Male
  Weight: 68 kg

DRUGS (4)
  1. CAPECITABINE [Suspect]
     Indication: COLORECTAL CANCER METASTATIC
     Dosage: FREQUENCY: DAILY. LAST DOSE PRIOR TO SAE : 04 JUNE 2009.  DRUG PERMANENTLY DISCONTINUED.
     Route: 048
     Dates: start: 20090518, end: 20090608
  2. FOSITENS [Concomitant]
     Dosage: DRUG REPORTED AS: FOSITEN.
     Dates: start: 20040101, end: 20090611
  3. SIBELIUM [Concomitant]
     Dates: start: 20040101, end: 20090611
  4. OMEPRAZOL [Concomitant]
     Dates: start: 20090608, end: 20090611

REACTIONS (1)
  - ARTERIAL THROMBOSIS LIMB [None]
